FAERS Safety Report 4581014-8 (Version None)
Quarter: 2005Q1

REPORT INFORMATION
  Report Type: 
  Country: None (occurrence: None)
  Receive Date: 20050214
  Receipt Date: 20040719
  Transmission Date: 20050727
  Serious: No
  Sender: FDA-Public Use
  Company Number: US-GLAXOSMITHKLINE-A0518802A

PATIENT
  Age: 47 Year
  Sex: Female

DRUGS (8)
  1. LAMICTAL [Suspect]
     Dosage: 100MG TWICE PER DAY
     Route: 048
     Dates: start: 20040621, end: 20040702
  2. SEROQUEL [Concomitant]
     Indication: PSYCHOTIC DISORDER
     Dosage: 50MG THREE TIMES PER DAY
     Route: 048
  3. SEROQUEL [Concomitant]
     Dosage: 200MG AT NIGHT
     Route: 048
  4. NEURONTIN [Concomitant]
     Dosage: 300MG THREE TIMES PER DAY
     Route: 048
  5. CELEXA [Concomitant]
     Indication: DEPRESSION
     Dosage: 40MG PER DAY
     Route: 048
  6. ALBUTEROL [Concomitant]
  7. ADVAIR DISKUS 100/50 [Concomitant]
  8. ANTI-HYPERTENSIVE [Concomitant]

REACTIONS (10)
  - ADVERSE DRUG REACTION [None]
  - CHAPPED LIPS [None]
  - DEHYDRATION [None]
  - DERMATITIS EXFOLIATIVE [None]
  - DIARRHOEA [None]
  - INFLUENZA LIKE ILLNESS [None]
  - NAUSEA [None]
  - RASH [None]
  - URTICARIA [None]
  - VOMITING [None]
